FAERS Safety Report 7299661-1 (Version None)
Quarter: 2011Q1

REPORT INFORMATION
  Report Type: 
  Country: None (occurrence: None)
  Receive Date: 20110217
  Receipt Date: 20110208
  Transmission Date: 20110831
  Serious: Yes (Hospitalization)
  Sender: FDA-Public Use
  Company Number: GB-PFIZER INC-GB-WYE-G04937909

PATIENT
  Age: 25 Year
  Sex: Male

DRUGS (5)
  1. OXYCODONE [Concomitant]
     Route: 065
  2. IBUPROFEN [Suspect]
     Indication: PAIN
     Dosage: UNK MG, UNK
     Route: 048
  3. REMERON [Suspect]
     Indication: DEPRESSION
     Dosage: UNKNOWN
     Route: 048
  4. PREGABALIN [Suspect]
     Indication: PAIN
     Dosage: UNKNOWN
     Route: 048
  5. PSEUDOEPHEDRINE HYDROCHLORIDE [Suspect]
     Indication: NASOPHARYNGITIS
     Dosage: UNKNOWN
     Route: 065
     Dates: start: 20060219

REACTIONS (1)
  - PYREXIA [None]
